FAERS Safety Report 10284908 (Version 2)
Quarter: 2014Q3

REPORT INFORMATION
  Report Type: Report from Study
  Country: BD (occurrence: BD)
  Receive Date: 20140708
  Receipt Date: 20140710
  Transmission Date: 20150326
  Serious: Yes (Death, Other)
  Sender: FDA-Public Use
  Company Number: PHHY2014BD083972

PATIENT
  Age: 70 Year
  Sex: Female

DRUGS (1)
  1. EXELON PATCH [Suspect]
     Active Substance: RIVASTIGMINE
     Indication: DEMENTIA
     Dosage: 9.5 MG/ 24 HOUR (10 CM)
     Route: 062
     Dates: start: 20130710

REACTIONS (2)
  - Nervous system disorder [Fatal]
  - Circulatory collapse [Unknown]
